FAERS Safety Report 15604379 (Version 1)
Quarter: 2018Q4

REPORT INFORMATION
  Report Type: Spontaneous
  Country: US (occurrence: US)
  Receive Date: 20181110
  Receipt Date: 20181110
  Transmission Date: 20190205
  Serious: No
  Sender: FDA-Public Use
  Company Number: US-TEVA-2018-US-969472

PATIENT
  Age: 69 Year
  Sex: Female

DRUGS (1)
  1. CLONAZEPAM TEVA [Suspect]
     Active Substance: CLONAZEPAM
     Dosage: PER NIGHT
     Route: 065
     Dates: start: 201802, end: 201806

REACTIONS (2)
  - Product use in unapproved indication [Unknown]
  - Somnolence [Unknown]
